FAERS Safety Report 13480747 (Version 5)
Quarter: 2017Q3

REPORT INFORMATION
  Report Type: Spontaneous
  Country: US (occurrence: US)
  Receive Date: 20170425
  Receipt Date: 20170804
  Transmission Date: 20171127
  Serious: Yes (Hospitalization)
  Sender: FDA-Public Use
  Company Number: US-ACTELION-A-US2017-152924

PATIENT
  Age: 74 Year
  Sex: Female
  Weight: 56.69 kg

DRUGS (3)
  1. COUMADIN [Concomitant]
     Active Substance: WARFARIN SODIUM
  2. REVATIO [Concomitant]
     Active Substance: SILDENAFIL CITRATE
  3. VELETRI [Suspect]
     Active Substance: EPOPROSTENOL
     Indication: PULMONARY ARTERIAL HYPERTENSION
     Dosage: 39 NG/KG, PER MIN
     Route: 042

REACTIONS (6)
  - Chills [Unknown]
  - Bone pain [Unknown]
  - Urinary tract infection [Unknown]
  - Rash generalised [Unknown]
  - Nephrolithiasis [Unknown]
  - Sepsis [Unknown]
